FAERS Safety Report 6213512-5 (Version None)
Quarter: 2009Q2

REPORT INFORMATION
  Report Type: 
  Country: None (occurrence: None)
  Receive Date: 20090603
  Receipt Date: 20090522
  Transmission Date: 20091009
  Serious: Yes (Other)
  Sender: FDA-Public Use
  Company Number: GB-PFIZER INC-2009216891

PATIENT
  Age: 36 Year

DRUGS (1)
  1. CHAMPIX [Suspect]
     Indication: SMOKING CESSATION THERAPY
     Dosage: UNK
     Route: 048
     Dates: start: 20080416, end: 20080806

REACTIONS (4)
  - BLOOD THYROID STIMULATING HORMONE INCREASED [None]
  - FATIGUE [None]
  - FEELING COLD [None]
  - PRIMARY HYPOTHYROIDISM [None]
